FAERS Safety Report 18862568 (Version 1)
Quarter: 2021Q1

REPORT INFORMATION
  Report Type: Spontaneous
  Country: US (occurrence: US)
  Receive Date: 20210208
  Receipt Date: 20210208
  Transmission Date: 20210420
  Serious: No
  Sender: FDA-Public Use
  Company Number: US-SA-2021SA037935

PATIENT
  Age: 57 Year
  Sex: Male

DRUGS (1)
  1. DUPIXENT [Suspect]
     Active Substance: DUPILUMAB

REACTIONS (6)
  - Skin burning sensation [Unknown]
  - Condition aggravated [Unknown]
  - Pruritus [Unknown]
  - Sleep disorder [Unknown]
  - Eczema [Unknown]
  - Pain of skin [Unknown]
